FAERS Safety Report 9786617 (Version 1)
Quarter: 2013Q4

REPORT INFORMATION
  Report Type: Spontaneous
  Country: TR (occurrence: TR)
  Receive Date: 20131227
  Receipt Date: 20131227
  Transmission Date: 20140711
  Serious: Yes (Other)
  Sender: FDA-Public Use
  Company Number: PHHY2013TR148436

PATIENT
  Sex: 0

DRUGS (1)
  1. FLUOXETINE [Suspect]

REACTIONS (2)
  - Mania [Unknown]
  - Drug withdrawal syndrome [Unknown]
